FAERS Safety Report 10993185 (Version 1)
Quarter: 2015Q2

REPORT INFORMATION
  Report Type: Not Available
  Country: US (occurrence: US)
  Receive Date: 20150407
  Receipt Date: 20150407
  Transmission Date: 20150821
  Serious: Yes (Other)
  Sender: FDA-Public Use
  Company Number: US-LUPIN PHARMACEUTICALS INC.-E2B_00003195

PATIENT
  Sex: Female

DRUGS (2)
  1. LEVETIRACETAM TABLETS USP 1000MG [Suspect]
     Active Substance: LEVETIRACETAM
     Indication: EPILEPSY
  2. LEVETIRACETAM TABLETS USP 1000MG [Suspect]
     Active Substance: LEVETIRACETAM
     Indication: SEIZURE

REACTIONS (2)
  - Drug ineffective [Unknown]
  - Seizure [Unknown]
